FAERS Safety Report 7508985-1 (Version None)
Quarter: 2011Q2

REPORT INFORMATION
  Report Type: 
  Country: None (occurrence: None)
  Receive Date: 20110527
  Receipt Date: 20110523
  Transmission Date: 20111010
  Serious: Yes (Other)
  Sender: FDA-Public Use
  Company Number: FR-SANOFI-AVENTIS-2011SA032795

PATIENT
  Age: 58 Year
  Sex: Male
  Weight: 90 kg

DRUGS (4)
  1. MEDIATOR [Suspect]
     Route: 048
     Dates: start: 20060101, end: 20071001
  2. PLAVIX [Suspect]
     Route: 048
  3. ATENOLOL [Suspect]
     Route: 048
  4. LEVOTHYROXINE SODIUM [Suspect]
     Route: 048

REACTIONS (2)
  - TRICUSPID VALVE DISEASE [None]
  - MITRAL VALVE DISEASE [None]
